FAERS Safety Report 9195435 (Version 3)
Quarter: 2013Q2

REPORT INFORMATION
  Report Type: Spontaneous
  Country: CH (occurrence: CH)
  Receive Date: 20130328
  Receipt Date: 20130418
  Transmission Date: 20140414
  Serious: Yes (Other)
  Sender: FDA-Public Use
  Company Number: CH-AMGEN-CHESP2013020887

PATIENT
  Age: 29 Year
  Sex: Female

DRUGS (4)
  1. ENBREL [Suspect]
     Indication: ANKYLOSING SPONDYLITIS
     Dosage: 50 MG, MONTHLY
     Dates: start: 2011, end: 20120308
  2. DESOREN /00570801/ [Suspect]
     Indication: CONTRACEPTION
     Dosage: 1 DF, 1X/DAY
     Dates: start: 2011, end: 20120308
  3. METHOTREXATE SODIUM [Concomitant]
     Indication: ANKYLOSING SPONDYLITIS
     Dosage: 15 MG, WEEKLY
     Dates: start: 2011, end: 20120308
  4. DAFALGAN [Concomitant]
     Indication: ANKYLOSING SPONDYLITIS
     Dosage: 1 G, 2X/DAY
     Dates: start: 2011

REACTIONS (2)
  - Drug ineffective [Unknown]
  - Unintended pregnancy [Recovered/Resolved]
